FAERS Safety Report 6107071-5 (Version None)
Quarter: 2009Q1

REPORT INFORMATION
  Report Type: 
  Country: None (occurrence: None)
  Receive Date: 20090309
  Receipt Date: 20090303
  Transmission Date: 20090719
  Serious: Yes (Hospitalization)
  Sender: FDA-Public Use
  Company Number: FR-BIOGENIDEC-2009BI006556

PATIENT
  Age: 25 Year
  Sex: Female

DRUGS (3)
  1. TYSABRI [Suspect]
     Indication: MULTIPLE SCLEROSIS
     Route: 042
     Dates: start: 20080101
  2. EPITOMAX [Concomitant]
     Indication: EPILEPSY
  3. TRILEPTAL [Concomitant]
     Indication: EPILEPSY

REACTIONS (1)
  - GRAND MAL CONVULSION [None]
